FAERS Safety Report 4846532-3 (Version None)
Quarter: 2005Q4

REPORT INFORMATION
  Report Type: 
  Country: None (occurrence: None)
  Receive Date: 20051202
  Receipt Date: 20051122
  Transmission Date: 20060501
  Serious: Yes (Other)
  Sender: FDA-Public Use
  Company Number: 2005-11-0250

PATIENT
  Age: 76 Year
  Sex: Male
  Weight: 81.6475 kg

DRUGS (6)
  1. PROVENTIL [Suspect]
     Indication: ASTHMA
     Dosage: 2 DOSES / DAY INHALATION
     Route: 055
  2. PROVENTIL [Suspect]
  3. ALBUTEROL [Suspect]
     Dosage: ORAL AER INH
     Route: 055
  4. ASPIRIN [Concomitant]
  5. TEGRETOL [Concomitant]
  6. LIPITOR [Concomitant]

REACTIONS (5)
  - DIZZINESS [None]
  - EXTRASYSTOLES [None]
  - MALAISE [None]
  - PHARMACEUTICAL PRODUCT COMPLAINT [None]
  - THERAPEUTIC RESPONSE UNEXPECTED WITH DRUG SUBSTITUTION [None]
